FAERS Safety Report 19483192 (Version 3)
Quarter: 2022Q4

REPORT INFORMATION
  Report Type: Spontaneous
  Country: US (occurrence: US)
  Receive Date: 20210701
  Receipt Date: 20221101
  Transmission Date: 20230113
  Serious: No
  Sender: FDA-Public Use
  Company Number: US-PFIZER INC-2021498392

PATIENT
  Age: 72 Year
  Sex: Male

DRUGS (1)
  1. GENOTROPIN [Suspect]
     Active Substance: SOMATROPIN
     Dosage: 0.5 MG, DAILY (7 DAYS A WEEK)
     Dates: start: 20140614

REACTIONS (2)
  - Device use error [Unknown]
  - Device breakage [Unknown]
